FAERS Safety Report 5845890-0 (Version None)
Quarter: 2008Q3

REPORT INFORMATION
  Report Type: 
  Country: None (occurrence: None)
  Receive Date: 20080731
  Receipt Date: 20080527
  Transmission Date: 20090109
  Serious: No
  Sender: FDA-Public Use
  Company Number: US200805005570

PATIENT
  Sex: Male

DRUGS (2)
  1. BYETTA [Suspect]
     Dosage: SUBCUTANEOUS ; 10 UG, SUBCUTANEOUS
     Route: 058
  2. BYETTA [Suspect]
     Dosage: SUBCUTANEOUS ; 10 UG, SUBCUTANEOUS
     Route: 058
     Dates: start: 20080201

REACTIONS (1)
  - MALAISE [None]
